FAERS Safety Report 18540450 (Version 2)
Quarter: 2021Q1

REPORT INFORMATION
  Report Type: Spontaneous
  Country: US (occurrence: US)
  Receive Date: 20201124
  Receipt Date: 20210105
  Transmission Date: 20210419
  Serious: No
  Sender: FDA-Public Use
  Company Number: US-PFIZER INC-2020460795

PATIENT
  Age: 69 Year
  Sex: Female

DRUGS (4)
  1. MEKTOVI [Suspect]
     Active Substance: BINIMETINIB
     Indication: MALIGNANT MELANOMA
     Dosage: 45 MG, 2X/DAY
     Route: 048
     Dates: start: 20201027, end: 20201027
  2. MEKTOVI [Suspect]
     Active Substance: BINIMETINIB
     Dosage: UNK, CYCLIC (NOW THREE WEEKS ON 1 WEEK OFF)
  3. BRAFTOVI [Suspect]
     Active Substance: ENCORAFENIB
     Indication: MALIGNANT MELANOMA
     Dosage: 450 MG, DAILY(180CT 450 MG PO (BY MOUTH)DAILY)
     Route: 048
     Dates: start: 20201027
  4. BRAFTOVI [Suspect]
     Active Substance: ENCORAFENIB
     Dosage: UNK, CYCLIC (NOW THREE WEEKS ON 1 WEEK OFF)

REACTIONS (5)
  - Vomiting [Unknown]
  - Decreased appetite [Unknown]
  - Abdominal discomfort [Unknown]
  - Fatigue [Unknown]
  - Off label use [Unknown]
